FAERS Safety Report 25467785 (Version 1)
Quarter: 2025Q2

REPORT INFORMATION
  Report Type: Spontaneous
  Country: US (occurrence: None)
  Receive Date: 20250622
  Receipt Date: 20250622
  Transmission Date: 20250716
  Serious: Yes (Other)
  Sender: FDA-CTU
  Company Number: None

PATIENT
  Age: 35 Year
  Sex: Female
  Weight: 78.75 kg

DRUGS (8)
  1. ZEPBOUND [Suspect]
     Active Substance: TIRZEPATIDE
     Indication: Obesity
     Dosage: 1 INJECTION (S) WEEKLY SUBCUTANEOUS?
     Route: 058
     Dates: start: 20250613, end: 20250613
  2. LISINOPRIL [Concomitant]
     Active Substance: LISINOPRIL
  3. CAPLYTA [Concomitant]
     Active Substance: LUMATEPERONE
  4. enlyte (methylfolate) [Concomitant]
  5. VITAMINS [Concomitant]
     Active Substance: VITAMINS
  6. BERBERINE [Concomitant]
     Active Substance: BERBERINE
  7. LORATADINE [Concomitant]
     Active Substance: LORATADINE
  8. lutein and zeaxanthin [Concomitant]

REACTIONS (3)
  - Depression [None]
  - Suicidal ideation [None]
  - Crying [None]

NARRATIVE: CASE EVENT DATE: 20250620
